FAERS Safety Report 6310404-8 (Version None)
Quarter: 2009Q3

REPORT INFORMATION
  Report Type: 
  Country: None (occurrence: None)
  Receive Date: 20090814
  Receipt Date: 20090804
  Transmission Date: 20100115
  Serious: Yes (Disabling)
  Sender: FDA-Public Use
  Company Number: GB-PFIZER INC-2009221917

PATIENT
  Age: 49 Year

DRUGS (3)
  1. CHAMPIX [Suspect]
     Indication: SMOKING CESSATION THERAPY
     Dosage: 0.5 MG, 1X/DAY
     Route: 048
     Dates: start: 20090316, end: 20090401
  2. LEVOTHYROXINE [Concomitant]
     Indication: HYPOTHYROIDISM
     Dosage: 50 UG, UNK
     Route: 048
     Dates: start: 20060703
  3. CLIMAGEST [Concomitant]
     Indication: MENOPAUSE
     Dosage: 2 MG, UNK
     Route: 048
     Dates: start: 20021111

REACTIONS (28)
  - ABDOMINAL PAIN UPPER [None]
  - AMNESIA [None]
  - ASTHENIA [None]
  - BRADYPHRENIA [None]
  - CHEST PAIN [None]
  - CONFUSIONAL STATE [None]
  - DIARRHOEA [None]
  - DISTURBANCE IN ATTENTION [None]
  - DYSPHONIA [None]
  - DYSPNOEA [None]
  - EPISTAXIS [None]
  - FEELING ABNORMAL [None]
  - FEELING COLD [None]
  - FEELING HOT [None]
  - HEADACHE [None]
  - HEARING DISABILITY [None]
  - HYPERTENSION [None]
  - INSOMNIA [None]
  - MALAISE [None]
  - MUSCULOSKELETAL DISCOMFORT [None]
  - NAUSEA [None]
  - NIGHTMARE [None]
  - PAIN [None]
  - PALPITATIONS [None]
  - SPEECH DISORDER [None]
  - STRESS [None]
  - VISUAL IMPAIRMENT [None]
  - VOMITING [None]
